FAERS Safety Report 25545630 (Version 2)
Quarter: 2025Q3

REPORT INFORMATION
  Report Type: Spontaneous
  Country: US (occurrence: US)
  Receive Date: 20250712
  Receipt Date: 20250806
  Transmission Date: 20251021
  Serious: No
  Sender: SANOFI AVENTIS
  Company Number: US-SA-2025SA195779

PATIENT
  Age: 53 Year
  Sex: Female

DRUGS (1)
  1. ARAVA [Suspect]
     Active Substance: LEFLUNOMIDE

REACTIONS (1)
  - Rash [Unknown]

NARRATIVE: CASE EVENT DATE: 20220921
